FAERS Safety Report 8055149 (Version 3)
Quarter: 2013Q3

REPORT INFORMATION
  Report Type: Spontaneous
  Country: US (occurrence: US)
  Receive Date: 20110726
  Receipt Date: 20130819
  Transmission Date: 20140515
  Serious: No
  Sender: FDA-Public Use
  Company Number: US-BIOGENIDEC-2011BI026563

PATIENT
  Age: 54 Year
  Sex: Female

DRUGS (1)
  1. TYSABRI [Suspect]
     Indication: MULTIPLE SCLEROSIS
     Route: 042
     Dates: start: 20100430

REACTIONS (9)
  - Molluscum contagiosum [Recovered/Resolved]
  - Inflammation [Not Recovered/Not Resolved]
  - Neck pain [Not Recovered/Not Resolved]
  - Wrist fracture [Not Recovered/Not Resolved]
  - Coordination abnormal [Not Recovered/Not Resolved]
  - Joint swelling [Not Recovered/Not Resolved]
  - Decreased immune responsiveness [Unknown]
  - Malaise [Unknown]
  - Headache [Not Recovered/Not Resolved]
